FAERS Safety Report 8075896-5 (Version None)
Quarter: 2012Q1

REPORT INFORMATION
  Report Type: 
  Country: None (occurrence: None)
  Receive Date: 20120127
  Receipt Date: 20120123
  Transmission Date: 20120608
  Serious: Yes (Other)
  Sender: FDA-Public Use
  Company Number: US-PFIZER INC-2011154183

PATIENT
  Sex: Male
  Weight: 90.703 kg

DRUGS (7)
  1. CHANTIX [Suspect]
     Dosage: 1 MG, 2X/DAY
     Route: 048
     Dates: start: 20110101
  2. VARDENAFIL [Concomitant]
     Indication: SEXUAL DYSFUNCTION
     Dosage: 10 MG, AS NEEDED
     Route: 048
  3. LISINOPRIL [Concomitant]
     Indication: HYPERTENSION
     Dosage: 40MG DAILY
  4. CHANTIX [Suspect]
     Indication: SMOKING CESSATION THERAPY
     Dosage: 0.5 MG,
     Route: 048
     Dates: start: 20110101
  5. CHANTIX [Suspect]
     Dosage: UNK
  6. HYDROCHLOROTHIAZIDE [Concomitant]
     Indication: HYPERTENSION
     Dosage: 25MG HALF A TABLET DAILY
     Route: 048
  7. YOHIMBE BARK [Concomitant]
     Indication: SEXUAL DYSFUNCTION
     Dosage: 1000 MG, UNK

REACTIONS (13)
  - MALAISE [None]
  - BOWEL MOVEMENT IRREGULARITY [None]
  - STRESS [None]
  - HAEMORRHOIDS [None]
  - FOOT FRACTURE [None]
  - DYSGEUSIA [None]
  - OROPHARYNGEAL PAIN [None]
  - FRUSTRATION [None]
  - ACCIDENT [None]
  - HYPERTENSION [None]
  - TOBACCO WITHDRAWAL SYMPTOMS [None]
  - GASTRITIS [None]
  - IMPAIRED DRIVING ABILITY [None]
